FAERS Safety Report 12059379 (Version 1)
Quarter: 2016Q1

REPORT INFORMATION
  Report Type: Spontaneous
  Country: CA (occurrence: CA)
  Receive Date: 20160210
  Receipt Date: 20160210
  Transmission Date: 20160526
  Serious: Yes (Other)
  Sender: FDA-Public Use
  Company Number: CA-WATSON-2016-02116

PATIENT
  Age: 46 Year
  Sex: Male

DRUGS (1)
  1. HEPARIN SODIUM (UNKNOWN) [Suspect]
     Active Substance: HEPARIN SODIUM
     Indication: DEEP VEIN THROMBOSIS
     Dosage: THERAPEUTIC DOSE
     Route: 065

REACTIONS (3)
  - Pulmonary embolism [Unknown]
  - Heparin-induced thrombocytopenia [Recovered/Resolved]
  - Peripheral artery thrombosis [Unknown]

NARRATIVE: CASE EVENT DATE: 1987
